FAERS Safety Report 5081593-0 (Version None)
Quarter: 2006Q3

REPORT INFORMATION
  Report Type: 
  Country: None (occurrence: None)
  Receive Date: 20060811
  Receipt Date: 20060802
  Transmission Date: 20061208
  Serious: Yes (Other)
  Sender: FDA-Public Use
  Company Number: 2006095270

PATIENT
  Sex: Male

DRUGS (8)
  1. LIPITOR [Suspect]
     Indication: DRUG USE FOR UNKNOWN INDICATION
     Dosage: 40 MG, ORAL
     Route: 048
  2. ASPIRIN [Concomitant]
  3. CLOPIDOGREL [Concomitant]
  4. BISOPROLOL FUMARATE [Concomitant]
  5. RAMIPRIL [Concomitant]
  6. PANTOPRAZOLE SODIUM [Concomitant]
  7. OMACOR (OMEGA-3 MARINE TRIGLYCERIDES) [Concomitant]
  8. NOVOMIX (INSULIN ASPART) [Concomitant]

REACTIONS (1)
  - PRIAPISM [None]
